FAERS Safety Report 8803045 (Version 2)
Quarter: 2012Q4

REPORT INFORMATION
  Report Type: 
  Country: US (occurrence: US)
  Receive Date: 20120924
  Receipt Date: 20121029
  Transmission Date: 20130627
  Serious: Yes (Hospitalization)
  Sender: FDA-Public Use
  Company Number: US-GILEAD-2012-0057909

PATIENT
  Sex: Female

DRUGS (3)
  1. LETAIRIS [Suspect]
     Indication: PULMONARY HYPERTENSION
     Dosage: 10 mg, UNK
     Route: 048
     Dates: start: 20100120
  2. LETAIRIS [Suspect]
     Indication: SCLERODERMA
     Dosage: 5 UNK, UNK
     Route: 048
     Dates: start: 20120120
  3. LETAIRIS [Suspect]
     Dosage: 5 UNK, UNK
     Route: 048

REACTIONS (2)
  - Oedema peripheral [Unknown]
  - Sympathectomy [Unknown]
